FAERS Safety Report 5291372-7 (Version None)
Quarter: 2007Q2

REPORT INFORMATION
  Report Type: 
  Country: None (occurrence: None)
  Receive Date: 20070402
  Receipt Date: 20070321
  Transmission Date: 20071010
  Serious: Yes (Death, Hospitalization)
  Sender: FDA-Public Use
  Company Number: 238757

PATIENT
  Age: 62 Year
  Sex: Male

DRUGS (6)
  1. MABTHERA (RITUXIMAB) CONC FOR SOLUTION FOR INFUSION [Suspect]
     Dosage: 630 MG, UNK, INTRAVENOUS
     Route: 042
     Dates: start: 20061220
  2. PREDNISOLONE [Suspect]
     Indication: DRUG USE FOR UNKNOWN INDICATION
     Dosage: 101 MG, UNK, INTRAVENOUS
     Route: 042
     Dates: start: 20061221
  3. CYCLOPHOSPHAMIDE [Suspect]
     Dosage: 840 MG, UNK, INTRAVENOUS
     Route: 042
     Dates: start: 20061222
  4. VINCRISTINE [Suspect]
     Dosage: 2 MG, 1/WEEK, INTRAVENOUS
     Route: 042
     Dates: start: 20061221
  5. METHOTREXATE [Suspect]
     Dosage: 5000 MG, UNK, INTRAVENOUS
     Route: 042
     Dates: start: 20061221
  6. DOXORUBICIN HCL [Suspect]
     Dosage: 100 MG, UNK, INTRAVENOUS
     Route: 042
     Dates: start: 20061222

REACTIONS (4)
  - EPISTAXIS [None]
  - INTERSTITIAL LUNG DISEASE [None]
  - RENAL FAILURE [None]
  - RESPIRATORY DISTRESS [None]
